FAERS Safety Report 24697352 (Version 1)
Quarter: 2024Q4

REPORT INFORMATION
  Report Type: Spontaneous
  Country: ES (occurrence: ES)
  Receive Date: 20241204
  Receipt Date: 20241204
  Transmission Date: 20250115
  Serious: Yes (Other)
  Sender: AMGEN
  Company Number: ES-AMGEN-ESPSP2024235799

PATIENT

DRUGS (2)
  1. ADALIMUMAB [Suspect]
     Active Substance: ADALIMUMAB
     Indication: Crohn^s disease
     Dosage: 40 MILLIGRAM, Q2WK
     Route: 065
  2. ADALIMUMAB [Suspect]
     Active Substance: ADALIMUMAB
     Indication: Colitis ulcerative

REACTIONS (14)
  - Cardiac failure [Unknown]
  - Polyneuropathy [Unknown]
  - Atypical pneumonia [Unknown]
  - Lupus-like syndrome [Unknown]
  - Nervous system disorder [Unknown]
  - Paradoxical psoriasis [Unknown]
  - Arthropathy [Unknown]
  - Dyspepsia [Unknown]
  - Therapy non-responder [Unknown]
  - Drug specific antibody present [Unknown]
  - Viral infection [Unknown]
  - Bacterial infection [Unknown]
  - Psoriasis [Unknown]
  - Therapeutic product effect decreased [Unknown]
